FAERS Safety Report 9657659 (Version 1)
Quarter: 2013Q4

REPORT INFORMATION
  Report Type: Spontaneous
  Country: GB (occurrence: GB)
  Receive Date: 20131030
  Receipt Date: 20131030
  Transmission Date: 20140711
  Serious: Yes (Hospitalization)
  Sender: FDA-Public Use
  Company Number: GB-MERCK-1310GBR013391

PATIENT
  Sex: Female

DRUGS (10)
  1. SITAGLIPTIN PHOSPHATE [Suspect]
     Dosage: UNK
     Route: 048
  2. RISPERIDONE [Concomitant]
     Dosage: 0.5 MG, BID
  3. ASPIRIN [Concomitant]
     Dosage: 75 MG, QD
  4. CALCIUM (UNSPECIFIED) (+) ERGOCALCIFEROL [Concomitant]
     Dosage: 1 DF, BID
  5. METFORMIN [Concomitant]
     Dosage: 1 G, BID
  6. PIOGLITAZONE HYDROCHLORIDE [Concomitant]
     Dosage: 15 MG, QD
  7. RAMIPRIL [Concomitant]
     Dosage: 5 MG, QD
  8. LACTULOSE [Concomitant]
     Dosage: 10 ML, BID
  9. TRAZODONE HYDROCHLORIDE [Concomitant]
     Dosage: 18 MG, QPM
  10. ACETAMINOPHEN [Concomitant]
     Dosage: 1 G, Q4H

REACTIONS (2)
  - Dysphagia [Unknown]
  - Wrong technique in drug usage process [Unknown]
